FAERS Safety Report 8533521-0 (Version None)
Quarter: 2012Q3

REPORT INFORMATION
  Report Type: 
  Country: None (occurrence: None)
  Receive Date: 20120724
  Receipt Date: 20120712
  Transmission Date: 20120928
  Serious: Yes (Hospitalization)
  Sender: FDA-Public Use
  Company Number: KR-ELI_LILLY_AND_COMPANY-KR201207004156

PATIENT
  Sex: Female

DRUGS (2)
  1. HUMALOG MIX 50/50 [Suspect]
     Indication: TYPE 2 DIABETES MELLITUS
     Dosage: 15 U, BID
     Route: 058
     Dates: start: 20120628
  2. HUMALOG MIX 50/50 [Suspect]
     Dosage: 16 U, BID
     Route: 058
     Dates: end: 20120705

REACTIONS (2)
  - FEMUR FRACTURE [None]
  - FALL [None]
